FAERS Safety Report 14689309 (Version 2)
Quarter: 2018Q2

REPORT INFORMATION
  Report Type: Report from Study
  Country: US (occurrence: US)
  Receive Date: 20180328
  Receipt Date: 20180406
  Transmission Date: 20180711
  Serious: No
  Sender: FDA-Public Use
  Company Number: PHEH2018US011787

PATIENT
  Age: 75 Year
  Sex: Female

DRUGS (2)
  1. ENTRESTO [Suspect]
     Active Substance: SACUBITRIL\VALSARTAN
     Indication: PRODUCT USED FOR UNKNOWN INDICATION
     Dosage: 2 DF (49MG SACUBITRIL AND 51MG VALSARTAN), BID (2 IN MORNING AND 2 IN NIGHT)
     Route: 048
  2. ENTRESTO [Suspect]
     Active Substance: SACUBITRIL\VALSARTAN
     Dosage: 1 DF (49MG SACUBITRIL AND 51MG VALSARTAN), BID (1 IN MORNING AND 1 AT NIGHT)
     Route: 048
     Dates: start: 20180309

REACTIONS (3)
  - Hypotension [Unknown]
  - Heart rate decreased [Unknown]
  - Dizziness [Unknown]

NARRATIVE: CASE EVENT DATE: 20180309
